FAERS Safety Report 7418932-9 (Version None)
Quarter: 2011Q2

REPORT INFORMATION
  Report Type: 
  Country: None (occurrence: None)
  Receive Date: 20110415
  Receipt Date: 20110405
  Transmission Date: 20111010
  Serious: Yes (Other)
  Sender: FDA-Public Use
  Company Number: US-JNJFOC-20110406351

PATIENT
  Age: 77 Year
  Sex: Female

DRUGS (2)
  1. TYLENOL-500 [Suspect]
     Indication: ARTHRALGIA
     Route: 048
  2. TYLENOL-500 [Suspect]
     Route: 048

REACTIONS (3)
  - ASTHMA [None]
  - RASH [None]
  - VOMITING [None]
